FAERS Safety Report 23347799 (Version 2)
Quarter: 2024Q1

REPORT INFORMATION
  Report Type: Spontaneous
  Country: IT (occurrence: IT)
  Receive Date: 20231228
  Receipt Date: 20240103
  Transmission Date: 20240409
  Serious: Yes (Life-Threatening, Hospitalization)
  Sender: FDA-Public Use
  Company Number: IT-MLMSERVICE-20231214-4728033-1

PATIENT
  Age: 29 Year
  Sex: Female

DRUGS (1)
  1. ETHINYL ESTRADIOL\LEVONORGESTREL [Suspect]
     Active Substance: ETHINYL ESTRADIOL\LEVONORGESTREL
     Indication: Oral contraception
     Dosage: 1 DF, 1X/DAY
     Route: 048

REACTIONS (4)
  - Superficial vein thrombosis [Recovering/Resolving]
  - Respiratory alkalosis [Recovering/Resolving]
  - Pulmonary hypertension [Recovered/Resolved]
  - Pulmonary embolism [Recovered/Resolved]
